FAERS Safety Report 6109466-2 (Version None)
Quarter: 2009Q1

REPORT INFORMATION
  Report Type: 
  Country: None (occurrence: None)
  Receive Date: 20090306
  Receipt Date: 20090226
  Transmission Date: 20090719
  Serious: Yes (Other)
  Sender: FDA-Public Use
  Company Number: KV200900240

PATIENT
  Age: 68 Year
  Sex: Female

DRUGS (2)
  1. ISOSORBIDE MONONITRATE [Suspect]
     Indication: CARDIAC DISORDER
     Dosage: ORAL
     Route: 048
  2. UNSPECIFIED HEART MEDICATIONS [Concomitant]

REACTIONS (5)
  - ABNORMAL SENSATION IN EYE [None]
  - ASTHENIA [None]
  - EYE HAEMORRHAGE [None]
  - HEADACHE [None]
  - INCORRECT DOSE ADMINISTERED [None]
